FAERS Safety Report 8614282-3 (Version None)
Quarter: 2012Q3

REPORT INFORMATION
  Report Type: 
  Country: None (occurrence: None)
  Receive Date: 20120823
  Receipt Date: 20120821
  Transmission Date: 20120928
  Serious: Yes (Other)
  Sender: FDA-Public Use
  Company Number: BR-BAYER-2012-086196

PATIENT
  Age: 38 Year
  Sex: Male

DRUGS (2)
  1. DIPYRONE INJ [Concomitant]
     Indication: NEPHROLITHIASIS
     Dosage: 55 GTT, PRN
     Route: 048
     Dates: start: 20120701
  2. BETAFERON [Suspect]
     Indication: MULTIPLE SCLEROSIS
     Dosage: UNK UNK, QOD
     Route: 058
     Dates: start: 20101214

REACTIONS (4)
  - INFLUENZA LIKE ILLNESS [None]
  - PYREXIA [None]
  - CENTRAL NERVOUS SYSTEM LESION [None]
  - MALAISE [None]
